FAERS Safety Report 8399492-5 (Version None)
Quarter: 2012Q2

REPORT INFORMATION
  Report Type: 
  Country: None (occurrence: None)
  Receive Date: 20120323
  Receipt Date: 20110118
  Transmission Date: 20120825
  Serious: Yes (Other)
  Sender: FDA-Public Use
  Company Number: 163-21880-11011971

PATIENT
  Age: 84 Year
  Sex: Female

DRUGS (16)
  1. REVLIMID [Suspect]
     Indication: MULTIPLE MYELOMA
     Dosage: 25 MG, 1 IN 1 D. PO,15 MG, 1 IN 1 D. PO
     Route: 048
     Dates: start: 20100902
  2. REVLIMID [Suspect]
     Indication: MULTIPLE MYELOMA
     Dosage: 25 MG, 1 IN 1 D. PO,15 MG, 1 IN 1 D. PO
     Route: 048
     Dates: start: 20101201, end: 20110114
  3. FISH OIL (FISH OIL)(CAPSULES) [Concomitant]
  4. DEXAMETHASONE [Concomitant]
  5. PROTONIX (PANTOPRAZOLE)(TABLETS) [Concomitant]
  6. CALCIUM PLUS D (TABLETS) [Concomitant]
  7. PRESERVISION (PRESERVISION LUTEIN EYE VITA.+MIN.SUP.SOFTG.)(TABLETS) [Concomitant]
  8. ASPIRIN [Concomitant]
  9. AMOIDARONE (AMIODARONE)(TABLETS) [Concomitant]
  10. TESSALON [Concomitant]
  11. LUTEIN (XANTOFYL) (CAPSULES) [Concomitant]
  12. AMLODIPINE [Concomitant]
  13. VENTOLIN (SALBUTAMOL)(AEROSOL FOR INHALATION) [Concomitant]
  14. AMIODARONE HCL [Concomitant]
  15. CENTRUM SILVER (CENTRUM SILVER)(TABLETS) [Concomitant]
  16. LEVOXYL (LEVOTHYROXINE SODIUM) (TABLETS) [Concomitant]

REACTIONS (2)
  - THROMBOSIS [None]
  - ANAEMIA [None]
